FAERS Safety Report 18677331 (Version 2)
Quarter: 2021Q1

REPORT INFORMATION
  Report Type: Spontaneous
  Country: CZ (occurrence: CZ)
  Receive Date: 20201229
  Receipt Date: 20210125
  Transmission Date: 20210419
  Serious: Yes (Hospitalization)
  Sender: FDA-Public Use
  Company Number: CZ-MYLANLABS-2020M1104348

PATIENT
  Age: 96 Year
  Sex: Female

DRUGS (9)
  1. OXAZEPAM. [Suspect]
     Active Substance: OXAZEPAM
     Indication: PRODUCT USED FOR UNKNOWN INDICATION
     Dosage: UNK
  2. OXAZEPAM. [Suspect]
     Active Substance: OXAZEPAM
     Dosage: OVERUSED
     Route: 065
  3. TRAMADOL. [Suspect]
     Active Substance: TRAMADOL
     Dosage: OVERUSED
     Route: 065
  4. STILNOX [Suspect]
     Active Substance: ZOLPIDEM TARTRATE
     Dosage: OVERUSED
     Route: 065
  5. TRAMADOL. [Suspect]
     Active Substance: TRAMADOL
     Indication: PRODUCT USED FOR UNKNOWN INDICATION
     Dosage: UNK
  6. STILNOX [Suspect]
     Active Substance: ZOLPIDEM TARTRATE
     Indication: PRODUCT USED FOR UNKNOWN INDICATION
     Dosage: UNK
  7. HYPNOGEN [Suspect]
     Active Substance: ZOLPIDEM TARTRATE
     Dosage: OVERUSED
     Route: 065
  8. HYPNOGEN [Suspect]
     Active Substance: ZOLPIDEM TARTRATE
     Indication: PRODUCT USED FOR UNKNOWN INDICATION
     Dosage: UNK
  9. IBALGIN [Concomitant]
     Active Substance: IBUPROFEN
     Dosage: UNK

REACTIONS (6)
  - Fracture [Recovered/Resolved]
  - Fall [Recovering/Resolving]
  - Cognitive disorder [Recovering/Resolving]
  - Dizziness [Recovering/Resolving]
  - Anxiety [Recovering/Resolving]
  - Intentional product misuse [Recovered/Resolved]
